FAERS Safety Report 8806551 (Version 8)
Quarter: 2013Q2

REPORT INFORMATION
  Report Type: Report from Study
  Country: US (occurrence: US)
  Receive Date: 20120925
  Receipt Date: 20130506
  Transmission Date: 20140414
  Serious: Yes (Hospitalization)
  Sender: FDA-Public Use
  Company Number: US-JNJFOC-20120909031

PATIENT
  Age: 17 Year
  Sex: Female
  Weight: 54.3 kg

DRUGS (9)
  1. INFLIXIMAB, RECOMBINANT [Suspect]
     Indication: COLITIS ULCERATIVE
     Route: 042
     Dates: start: 20110603
  2. FLAGYL [Concomitant]
  3. 5-ASA [Concomitant]
     Route: 048
  4. PREDNISONE [Concomitant]
  5. ESOMEPRAZOLE [Concomitant]
  6. VANCOMYCIN [Concomitant]
  7. ONDANSETRON [Concomitant]
  8. HYDROCODONE/ACETAMINOPHEN [Concomitant]
  9. DOCUSATE [Concomitant]

REACTIONS (2)
  - Clostridium difficile infection [Recovered/Resolved]
  - Colitis ulcerative [Recovered/Resolved]
